FAERS Safety Report 23453922 (Version 2)
Quarter: 2025Q1

REPORT INFORMATION
  Report Type: Spontaneous
  Country: IT (occurrence: IT)
  Receive Date: 20240129
  Receipt Date: 20250325
  Transmission Date: 20250409
  Serious: Yes (Hospitalization, Other)
  Sender: TEVA
  Company Number: IT-TEVA-VS-3148472

PATIENT
  Age: 74 Year
  Sex: Female

DRUGS (2)
  1. CARBOPLATIN [Suspect]
     Active Substance: CARBOPLATIN
     Indication: Adenosquamous carcinoma of the cervix
     Route: 065
     Dates: start: 202207, end: 202209
  2. CEMIPLIMAB [Suspect]
     Active Substance: CEMIPLIMAB
     Indication: Adenosquamous carcinoma of the cervix
     Route: 065
     Dates: start: 202210

REACTIONS (5)
  - Acute myocardial infarction [Recovering/Resolving]
  - Off label use [Unknown]
  - Hypertransaminasaemia [Recovering/Resolving]
  - Drug ineffective [Unknown]
  - Cardiovascular disorder [Recovering/Resolving]
